FAERS Safety Report 6279768-8 (Version None)
Quarter: 2009Q3

REPORT INFORMATION
  Report Type: 
  Country: None (occurrence: None)
  Receive Date: 20090721
  Receipt Date: 20090707
  Transmission Date: 20100115
  Serious: Yes (Life-Threatening)
  Sender: FDA-Public Use
  Company Number: JP-000484

PATIENT
  Age: 51 Year
  Sex: Female

DRUGS (1)
  1. DESMOPRESSIN       NASAL SPRAY 10 ?G [Suspect]
     Indication: DIABETES INSIPIDUS
     Dosage: 20 ?G NASAL
     Route: 045
     Dates: start: 20070601, end: 20090513

REACTIONS (1)
  - ANAPHYLACTIC REACTION [None]
